FAERS Safety Report 8221793-1 (Version None)
Quarter: 2012Q1

REPORT INFORMATION
  Report Type: 
  Country: None (occurrence: None)
  Receive Date: 20120320
  Receipt Date: 20120320
  Transmission Date: 20120608
  Serious: Yes (Other)
  Sender: FDA-Public Use
  Company Number: None

PATIENT
  Age: 19 Year
  Sex: Female
  Weight: 47.627 kg

DRUGS (2)
  1. METOCLOPRAM -GENERIC FOR REGLAN- [Suspect]
     Indication: VOMITING
     Dosage: ONE TABLET
     Route: 048
     Dates: start: 20120313, end: 20120315
  2. METOCLOPRAM -GENERIC FOR REGLAN- [Suspect]
     Indication: NAUSEA
     Dosage: ONE TABLET
     Route: 048
     Dates: start: 20120313, end: 20120315

REACTIONS (3)
  - SPEECH DISORDER [None]
  - JOINT DISLOCATION [None]
  - DYSPHAGIA [None]
